FAERS Safety Report 4588152-4 (Version None)
Quarter: 2005Q1

REPORT INFORMATION
  Report Type: 
  Country: None (occurrence: None)
  Receive Date: 20050221
  Receipt Date: 20050214
  Transmission Date: 20050727
  Serious: Yes (Hospitalization)
  Sender: FDA-Public Use
  Company Number: PHEH2005US02003

PATIENT
  Age: 64 Year
  Sex: Female

DRUGS (1)
  1. DIOVAN HCT [Suspect]
     Indication: HYPERTENSION
     Dosage: 160 MG VAL/12.5 MG HCT QD
     Route: 048
     Dates: start: 20040901

REACTIONS (2)
  - CAROTID ENDARTERECTOMY [None]
  - PALPITATIONS [None]
